FAERS Safety Report 10071994 (Version 2)
Quarter: 2014Q1

REPORT INFORMATION
  Report Type: Spontaneous
  Country: US (occurrence: None)
  Receive Date: 20140314
  Receipt Date: 20140324
  Transmission Date: 20141002
  Serious: Yes (Death, Hospitalization, Other)
  Sender: FDA-Public Use
  Company Number: ADR-2014-00131

PATIENT
  Age: 67 Year
  Sex: Male

DRUGS (10)
  1. BACLOFEN [Suspect]
     Indication: MUSCLE SPASTICITY
  2. BACLOFEN ORAL 10MG [Suspect]
  3. ASPIRIN EC 325 MG [Suspect]
  4. GABAPENTIN [Suspect]
  5. NORTRIPTYLINE [Suspect]
  6. OXYBUTYNIN [Suspect]
     Dosage: EVERY 12 HR
  7. PAROXETINE [Suspect]
  8. OXYCODONE [Suspect]
  9. BACOLFEN [Suspect]
  10. ZINC [Suspect]

REACTIONS (12)
  - Muscle spasms [None]
  - Dizziness [None]
  - Withdrawal syndrome [None]
  - Decubitus ulcer [None]
  - Osteomyelitis [None]
  - Mental status changes [None]
  - Dyskinesia [None]
  - Hypertension [None]
  - Nephrolithiasis [None]
  - Infection [None]
  - Respiratory failure [None]
  - Muscle spasticity [None]
